FAERS Safety Report 4317361-4 (Version None)
Quarter: 2004Q1

REPORT INFORMATION
  Report Type: 
  Country: None (occurrence: None)
  Receive Date: 20040305
  Receipt Date: 20040106
  Transmission Date: 20041129
  Serious: Yes (Other)
  Sender: FDA-Public Use
  Company Number: US-SHR-04-019345

PATIENT
  Sex: 0

DRUGS (1)
  1. CAMPATH [Suspect]
     Indication: T-CELL LYMPHOMA
     Dosage: 3/10MG, UNK
     Dates: start: 20030101, end: 20030101

REACTIONS (1)
  - HAEMOLYSIS [None]
